FAERS Safety Report 20782801 (Version 1)
Quarter: 2022Q2

REPORT INFORMATION
  Report Type: Spontaneous
  Country: US (occurrence: US)
  Receive Date: 20220504
  Receipt Date: 20220504
  Transmission Date: 20220721
  Serious: No
  Sender: FDA-Public Use
  Company Number: US-PFIZER INC-202100910817

PATIENT
  Age: 66 Year
  Sex: Female
  Weight: 61.9 kg

DRUGS (1)
  1. IBRANCE [Suspect]
     Active Substance: PALBOCICLIB
     Indication: Breast cancer female
     Dosage: 100 MG, CYCLIC (21 DAY ON 7 DAY OFF)
     Route: 048
     Dates: start: 20210205

REACTIONS (2)
  - COVID-19 [Unknown]
  - Product dose omission issue [Unknown]
